FAERS Safety Report 12331805 (Version 1)
Quarter: 2016Q2

REPORT INFORMATION
  Report Type: Spontaneous
  Country: US (occurrence: None)
  Receive Date: 20160503
  Receipt Date: 20160503
  Transmission Date: 20160815
  Serious: No
  Sender: FDA-Public Use
  Company Number: None

PATIENT
  Age: 29 Year
  Sex: Female
  Weight: 61.24 kg

DRUGS (1)
  1. COPAXONE [Suspect]
     Active Substance: GLATIRAMER ACETATE
     Indication: MULTIPLE SCLEROSIS
     Dosage: 1 INJECTION (S) 3X A WEEK INJECTION INTO FAT
     Route: 058

REACTIONS (3)
  - Burning sensation [None]
  - Immediate post-injection reaction [None]
  - Urticaria [None]

NARRATIVE: CASE EVENT DATE: 20160501
